FAERS Safety Report 8551225-5 (Version None)
Quarter: 2012Q3

REPORT INFORMATION
  Report Type: 
  Country: None (occurrence: None)
  Receive Date: 20120730
  Receipt Date: 20120719
  Transmission Date: 20120928
  Serious: Yes (Other)
  Sender: FDA-Public Use
  Company Number: US-ELI_LILLY_AND_COMPANY-US201102003273

PATIENT
  Sex: Female

DRUGS (2)
  1. FORTEO [Suspect]
     Indication: OSTEOPOROSIS
     Dosage: 20 UG, QD
     Route: 065
     Dates: start: 20101201
  2. FORTEO [Suspect]
     Dosage: 20 UG, QD
     Route: 065

REACTIONS (9)
  - ABDOMINOPLASTY [None]
  - VITAMIN B12 INCREASED [None]
  - BLOOD PARATHYROID HORMONE INCREASED [None]
  - FATIGUE [None]
  - DRUG DOSE OMISSION [None]
  - PAIN [None]
  - INJECTION SITE PAIN [None]
  - INJECTION SITE HAEMATOMA [None]
  - PAIN IN EXTREMITY [None]
